FAERS Safety Report 24319292 (Version 1)
Quarter: 2024Q3

REPORT INFORMATION
  Report Type: Report from Study
  Country: US (occurrence: US)
  Receive Date: 20240914
  Receipt Date: 20240914
  Transmission Date: 20241017
  Serious: Yes (Death, Other)
  Sender: ABBVIE
  Company Number: US-ABBVIE-5922025

PATIENT
  Age: 67 Year
  Sex: Male

DRUGS (1)
  1. SYNTHROID [Suspect]
     Active Substance: LEVOTHYROXINE SODIUM
     Indication: Product used for unknown indication
     Dosage: 175 MCGS 1 TAB A DAY
     Route: 048
     Dates: start: 202308, end: 202408

REACTIONS (5)
  - Death [Fatal]
  - Lung neoplasm malignant [Unknown]
  - Coronary artery disease [Unknown]
  - Unevaluable event [Unknown]
  - Hospice care [Unknown]

NARRATIVE: CASE EVENT DATE: 20240809
